FAERS Safety Report 16636994 (Version 1)
Quarter: 2019Q3

REPORT INFORMATION
  Report Type: Spontaneous
  Country: US (occurrence: US)
  Receive Date: 20190726
  Receipt Date: 20190726
  Transmission Date: 20191004
  Serious: No
  Sender: FDA-Public Use
  Company Number: US-JNJFOC-20190707192

PATIENT
  Age: 31 Year
  Sex: Male
  Weight: 80.81 kg

DRUGS (7)
  1. RISPERDAL CONSTA [Suspect]
     Active Substance: RISPERIDONE
     Route: 030
  2. SEROQUEL [Concomitant]
     Active Substance: QUETIAPINE FUMARATE
  3. LORAZEPAM. [Concomitant]
     Active Substance: LORAZEPAM
  4. COGENTIN [Concomitant]
     Active Substance: BENZTROPINE MESYLATE
  5. RISPERDAL CONSTA [Suspect]
     Active Substance: RISPERIDONE
     Indication: SCHIZOPHRENIA
     Route: 030
  6. RISPERDAL [Concomitant]
     Active Substance: RISPERIDONE
     Dosage: AS NEEDED
  7. CLOZAPINE. [Concomitant]
     Active Substance: CLOZAPINE

REACTIONS (1)
  - Mania [Not Recovered/Not Resolved]

NARRATIVE: CASE EVENT DATE: 20190628
